FAERS Safety Report 10392764 (Version 4)
Quarter: 2015Q2

REPORT INFORMATION
  Report Type: Spontaneous
  Country: US (occurrence: None)
  Receive Date: 20140815
  Receipt Date: 20150506
  Transmission Date: 20150821
  Serious: Yes (Hospitalization, Other)
  Sender: FDA-Public Use
  Company Number: ADR-2014-01424

PATIENT
  Age: 50 Year
  Sex: Male

DRUGS (6)
  1. BACLOFEN. [Suspect]
     Active Substance: BACLOFEN
     Indication: PAIN
  2. DILAUDID [Suspect]
     Active Substance: HYDROMORPHONE HYDROCHLORIDE
  3. UNKNOWN MEDICATION [Suspect]
     Active Substance: UNSPECIFIED INGREDIENT
  4. OXYCONTIN [Suspect]
     Active Substance: OXYCODONE HYDROCHLORIDE
  5. PERCOCET [Suspect]
     Active Substance: ACETAMINOPHEN\OXYCODONE HYDROCHLORIDE
  6. BUPIVACAINE [Suspect]
     Active Substance: BUPIVACAINE

REACTIONS (18)
  - Arthralgia [None]
  - Fall [None]
  - Drug tolerance [None]
  - Staphylococcal infection [None]
  - Flatback syndrome [None]
  - Performance status decreased [None]
  - Medical device discomfort [None]
  - Bladder disorder [None]
  - Neck pain [None]
  - Gait disturbance [None]
  - Hypoaesthesia [None]
  - Scar [None]
  - Discomfort [None]
  - Patient-device incompatibility [None]
  - Nerve compression [None]
  - Bursa disorder [None]
  - Knee arthroplasty [None]
  - Musculoskeletal pain [None]
